FAERS Safety Report 5220256-5 (Version None)
Quarter: 2007Q1

REPORT INFORMATION
  Report Type: 
  Country: None (occurrence: None)
  Receive Date: 20061201
  Receipt Date: 20060713
  Transmission Date: 20070707
  Serious: No
  Sender: FDA-Public Use
  Company Number: 2006PV017486

PATIENT
  Age: 62 Year
  Sex: Female

DRUGS (9)
  1. BYETTA [Suspect]
     Indication: DIABETES MELLITUS NON-INSULIN-DEPENDENT
     Dosage: SEE IMAGE
     Route: 058
     Dates: start: 20060320, end: 20060404
  2. BYETTA [Suspect]
     Indication: DIABETES MELLITUS NON-INSULIN-DEPENDENT
     Dosage: SEE IMAGE
     Route: 058
     Dates: start: 20060405
  3. ACTOPLUS MET [Suspect]
     Indication: DIABETES MELLITUS NON-INSULIN-DEPENDENT
     Dosage: 5 MG;BID;PO
     Route: 048
     Dates: end: 20060424
  4. LISINOPRIL [Suspect]
     Dosage: SEE IMAGE
     Dates: start: 20060417, end: 20060101
  5. METFORMIN HCL [Concomitant]
  6. GLUCOTROL [Concomitant]
  7. METAGLIP [Concomitant]
  8. ACTOS /USA/ [Concomitant]
  9. LISINOPRIL [Concomitant]

REACTIONS (7)
  - ANOREXIA [None]
  - BLOOD GLUCOSE FLUCTUATION [None]
  - BLOOD GLUCOSE INCREASED [None]
  - FATIGUE [None]
  - FEELING ABNORMAL [None]
  - HYPOTENSION [None]
  - WEIGHT DECREASED [None]
